FAERS Safety Report 17422831 (Version 2)
Quarter: 2020Q1

REPORT INFORMATION
  Report Type: Report from Study
  Country: None (occurrence: AU)
  Receive Date: 20200215
  Receipt Date: 20200319
  Transmission Date: 20200409
  Serious: Yes (Other)
  Sender: FDA-Public Use
  Company Number: AU-ABBVIE-20K-008-3218315-00

PATIENT
  Sex: Female

DRUGS (1)
  1. IMBRUVICA [Suspect]
     Active Substance: IBRUTINIB
     Indication: CHRONIC LYMPHOCYTIC LEUKAEMIA
     Route: 048
     Dates: start: 20191121

REACTIONS (11)
  - Feeling abnormal [Unknown]
  - Increased tendency to bruise [Recovering/Resolving]
  - Fatigue [Unknown]
  - Uterine leiomyoma [Recovered/Resolved]
  - Anxiety [Not Recovered/Not Resolved]
  - Muscle fatigue [Unknown]
  - Urinary tract infection [Recovering/Resolving]
  - Arthralgia [Unknown]
  - Muscle spasms [Not Recovered/Not Resolved]
  - Cervix haemorrhage uterine [Unknown]
  - Emotional disorder [Not Recovered/Not Resolved]
